FAERS Safety Report 8601241-X (Version None)
Quarter: 2012Q3

REPORT INFORMATION
  Report Type: 
  Country: None (occurrence: None)
  Receive Date: 20120817
  Receipt Date: 20120816
  Transmission Date: 20120928
  Serious: Yes (Other)
  Sender: FDA-Public Use
  Company Number: PHHY2012BR062842

PATIENT
  Sex: Male
  Weight: 71 kg

DRUGS (4)
  1. AMLODOPINE BESYLATE AND VALSARTAN [Suspect]
     Indication: HYPERTENSION
     Dosage: 1 DF (160MG VALS/ 5MG AMLO), DAILY
     Route: 048
  2. AMLODOPINE BESYLATE AND VALSARTAN [Suspect]
     Dosage: 1 DF (160MG VALS/ 5MG AMLO), (1 TAB IN MORNING AND 1 TAB IN NIGHT
     Route: 048
  3. AMLODOPINE BESYLATE AND VALSARTAN [Suspect]
     Dosage: 2 DF (160MG VALS/ 5MG AMLO), A DAY
     Route: 048
  4. PASSANEURO [Concomitant]
     Indication: NERVOUSNESS
     Dosage: 1 DF, A DAY

REACTIONS (12)
  - LUNG NEOPLASM [None]
  - ARRHYTHMIA [None]
  - SOMNOLENCE [None]
  - SALIVARY GLAND PAIN [None]
  - NERVOUSNESS [None]
  - FATIGUE [None]
  - MEMORY IMPAIRMENT [None]
  - ASTHENIA [None]
  - INFLUENZA [None]
  - SALIVARY GLAND CANCER [None]
  - RESPIRATORY RATE INCREASED [None]
  - PALPITATIONS [None]
